FAERS Safety Report 15190757 (Version 5)
Quarter: 2018Q3

REPORT INFORMATION
  Report Type: Report from Study
  Country: MW (occurrence: MW)
  Receive Date: 20180724
  Receipt Date: 20180831
  Transmission Date: 20181010
  Serious: Yes (Other)
  Sender: FDA-Public Use
  Company Number: MW-GILEAD-2018-0351189

PATIENT
  Age: 36 Year
  Sex: Male
  Weight: 70.6 kg

DRUGS (4)
  1. PACLITAXEL. [Suspect]
     Active Substance: PACLITAXEL
     Indication: KAPOSI^S SARCOMA AIDS RELATED
     Dosage: 187 MG, UNK
     Route: 042
     Dates: start: 20150610, end: 20150811
  2. VINCRISTINE [Suspect]
     Active Substance: VINCRISTINE
     Indication: KAPOSI^S SARCOMA AIDS RELATED
     Dosage: 2 MG, UNK
     Route: 042
     Dates: start: 20150305, end: 20150423
  3. EFAVIRENZ/EMTRICITABINE/TENOFOVIR DISOPROXIL FUMARATE [Suspect]
     Active Substance: EFAVIRENZ\EMTRICITABINE\TENOFOVIR DISOPROXIL FUMARATE
     Indication: ANTIRETROVIRAL THERAPY
     Dosage: 600 MG/ 200 MG /300 MG
     Route: 048
     Dates: start: 20150305, end: 20160323
  4. BLEOMYCIN [Suspect]
     Active Substance: BLEOMYCIN SULFATE
     Indication: KAPOSI^S SARCOMA AIDS RELATED
     Dosage: 27.15 UNITS, UNK
     Route: 042
     Dates: start: 20150305, end: 20150423

REACTIONS (8)
  - Carbon dioxide abnormal [Unknown]
  - Blood alkaline phosphatase increased [Unknown]
  - Aspartate aminotransferase increased [Recovered/Resolved]
  - Blood bilirubin increased [Unknown]
  - Alanine aminotransferase increased [Recovered/Resolved]
  - Transaminases increased [Recovered/Resolved]
  - Platelet count decreased [Unknown]
  - Blood alkaline phosphatase increased [Unknown]

NARRATIVE: CASE EVENT DATE: 20151104
